FAERS Safety Report 23348571 (Version 1)
Quarter: 2023Q4

REPORT INFORMATION
  Report Type: Report from Study
  Country: US (occurrence: US)
  Receive Date: 20231228
  Receipt Date: 20231228
  Transmission Date: 20240110
  Serious: No
  Sender: FDA-Public Use
  Company Number: US-JNJFOC-20231217701

PATIENT
  Sex: Female

DRUGS (2)
  1. STELARA [Suspect]
     Active Substance: USTEKINUMAB
     Indication: Crohn^s disease
     Route: 058
  2. STELARA [Suspect]
     Active Substance: USTEKINUMAB

REACTIONS (6)
  - Device defective [Unknown]
  - Product dose omission issue [Unknown]
  - Off label use [Unknown]
  - Infusion site urticaria [Unknown]
  - Pain [Unknown]
  - Medication error [Unknown]

NARRATIVE: CASE EVENT DATE: 20231201
